FAERS Safety Report 7531867-6 (Version None)
Quarter: 2011Q2

REPORT INFORMATION
  Report Type: 
  Country: None (occurrence: None)
  Receive Date: 20110607
  Receipt Date: 20110607
  Transmission Date: 20111010
  Serious: No
  Sender: FDA-Public Use
  Company Number: None

PATIENT
  Age: 68 Year
  Sex: Male
  Weight: 122 kg

DRUGS (2)
  1. VANCOMYCIN [Suspect]
     Dosage: 150 MG ONCE IV
     Route: 042
     Dates: start: 20110302, end: 20110302
  2. HYDROMORPHONE HCL [Suspect]
     Dosage: 3 MG ONCE IV
     Route: 042
     Dates: start: 20110302, end: 20110302

REACTIONS (2)
  - ANAPHYLACTIC REACTION [None]
  - NO THERAPEUTIC RESPONSE [None]
